FAERS Safety Report 13770158 (Version 1)
Quarter: 2017Q3

REPORT INFORMATION
  Report Type: Spontaneous
  Country: US (occurrence: US)
  Receive Date: 20170719
  Receipt Date: 20170719
  Transmission Date: 20171127
  Serious: No
  Sender: FDA-Public Use
  Company Number: None

PATIENT
  Age: 64 Year
  Sex: Female

DRUGS (1)
  1. TACROLIMUS CAP 1MG ACCORD HEALTHCARE. [Suspect]
     Active Substance: TACROLIMUS

REACTIONS (2)
  - Oedema [None]
  - Blood pressure increased [None]

NARRATIVE: CASE EVENT DATE: 20150719
